FAERS Safety Report 14564308 (Version 1)
Quarter: 2018Q1

REPORT INFORMATION
  Report Type: Spontaneous
  Country: US (occurrence: US)
  Receive Date: 20180222
  Receipt Date: 20180222
  Transmission Date: 20180509
  Serious: No
  Sender: FDA-Public Use
  Company Number: US-GLAXOSMITHKLINE-US2018029354

PATIENT
  Sex: Female

DRUGS (1)
  1. VENTOLIN HFA [Suspect]
     Active Substance: ALBUTEROL SULFATE
     Indication: ASTHMA
     Dosage: 2 PUFF(S), PRN
     Route: 055

REACTIONS (6)
  - Lung disorder [Not Recovered/Not Resolved]
  - Product use issue [Unknown]
  - Drug ineffective [Recovered/Resolved]
  - Productive cough [Not Recovered/Not Resolved]
  - Condition aggravated [Unknown]
  - Overdose [Recovered/Resolved]
